FAERS Safety Report 17907709 (Version 1)
Quarter: 2020Q2

REPORT INFORMATION
  Report Type: Spontaneous
  Country: NL (occurrence: NL)
  Receive Date: 20200617
  Receipt Date: 20200617
  Transmission Date: 20200714
  Serious: Yes (Hospitalization)
  Sender: FDA-Public Use
  Company Number: NL-ELI_LILLY_AND_COMPANY-NL202006003404

PATIENT
  Age: 68 Year
  Sex: Male
  Weight: 84 kg

DRUGS (4)
  1. ABASAGLAR [Suspect]
     Active Substance: INSULIN GLARGINE
     Indication: TYPE 2 DIABETES MELLITUS
     Dosage: 34 U, UNKNOWN
     Route: 058
     Dates: start: 20191212, end: 20200518
  2. DEXAMETHASONE. [Concomitant]
     Active Substance: DEXAMETHASONE
     Indication: PRODUCT USED FOR UNKNOWN INDICATION
     Dosage: UNK
  3. ABASAGLAR [Suspect]
     Active Substance: INSULIN GLARGINE
     Indication: TYPE 2 DIABETES MELLITUS
     Dosage: 34 U, UNKNOWN
     Route: 058
     Dates: start: 20191212, end: 20200518
  4. METFORMINE [METFORMIN] [Concomitant]
     Active Substance: METFORMIN HYDROCHLORIDE
     Indication: PRODUCT USED FOR UNKNOWN INDICATION
     Dosage: 10000 (UNITS NOT PROVIDED)
     Route: 048

REACTIONS (4)
  - Blood glucose fluctuation [Recovered/Resolved]
  - Diabetic gastroparesis [Recovered/Resolved]
  - Dehydration [Recovered/Resolved]
  - Incorrect dose administered [Recovered/Resolved]

NARRATIVE: CASE EVENT DATE: 20200517
